FAERS Safety Report 8804669 (Version 1)
Quarter: 2012Q4

REPORT INFORMATION
  Report Type: 
  Country: US (occurrence: US)
  Receive Date: 20120924
  Receipt Date: 20120924
  Transmission Date: 20130627
  Serious: No
  Sender: FDA-Public Use
  Company Number: US-B.I. PHARMACEUTICALS,INC./RIDGEFIELD-2012-BP-22933BP

PATIENT
  Age: 80 Year
  Sex: Female
  Weight: 58 kg

DRUGS (8)
  1. SPIRIVA [Suspect]
     Indication: CHRONIC OBSTRUCTIVE PULMONARY DISEASE
     Dosage: 18 mcg
     Route: 055
     Dates: start: 201206
  2. SPIRIVA [Suspect]
     Route: 048
     Dates: start: 20120918, end: 20120918
  3. AMLODIPINE [Concomitant]
     Indication: HYPERTENSION
     Dosage: 10 mg
     Route: 048
     Dates: start: 201206
  4. SIMVASTATIN [Concomitant]
     Indication: BLOOD CHOLESTEROL INCREASED
     Dosage: 20 mg
     Route: 048
     Dates: start: 201206
  5. LISINOPRIL [Concomitant]
     Indication: HYPERTENSION
     Dosage: 10 mg
     Route: 048
     Dates: start: 201206
  6. CLOPIDOGREL [Concomitant]
     Indication: ANGIOPATHY
     Dosage: 75 mg
     Route: 048
     Dates: start: 2008
  7. HYDRALAZINE [Concomitant]
     Dosage: 75 mg
     Route: 048
     Dates: start: 201206
  8. ADVAIR [Concomitant]
     Indication: ASTHMA
     Route: 055
     Dates: start: 201206

REACTIONS (1)
  - Incorrect route of drug administration [Recovered/Resolved]
